FAERS Safety Report 18198194 (Version 2)
Quarter: 2020Q4

REPORT INFORMATION
  Report Type: Report from Study
  Country: None (occurrence: US)
  Receive Date: 20200826
  Receipt Date: 20201125
  Transmission Date: 20210113
  Serious: Yes (Other)
  Sender: FDA-Public Use
  Company Number: US-ABBVIE-20K-163-3290764-00

PATIENT
  Age: 61 Year
  Sex: Female

DRUGS (1)
  1. HUMIRA [Suspect]
     Active Substance: ADALIMUMAB
     Indication: RHEUMATOID ARTHRITIS
     Route: 058
     Dates: start: 20200210, end: 2020

REACTIONS (59)
  - Fatigue [Unknown]
  - Gastric disorder [Unknown]
  - Feeling hot [Unknown]
  - Skin burning sensation [Unknown]
  - Dry eye [Unknown]
  - Pain [Recovering/Resolving]
  - Tibia fracture [Unknown]
  - Fibula fracture [Unknown]
  - Blood glucose decreased [Unknown]
  - Lymphadenopathy [Unknown]
  - Pruritus [Unknown]
  - Vision blurred [Unknown]
  - Arthralgia [Not Recovered/Not Resolved]
  - Eye pruritus [Unknown]
  - Hypophagia [Recovering/Resolving]
  - Nasopharyngitis [Not Recovered/Not Resolved]
  - Rash [Unknown]
  - Herpes zoster [Unknown]
  - Grip strength decreased [Recovering/Resolving]
  - Gait disturbance [Not Recovered/Not Resolved]
  - Off label use [Unknown]
  - Hyperhidrosis [Unknown]
  - Anxiety [Unknown]
  - Rash [Recovering/Resolving]
  - Rubber sensitivity [Recovered/Resolved]
  - Feeling cold [Unknown]
  - Loss of personal independence in daily activities [Not Recovered/Not Resolved]
  - Weight bearing difficulty [Recovered/Resolved]
  - Muscle disorder [Unknown]
  - Depression [Unknown]
  - Neuropathy peripheral [Recovering/Resolving]
  - Hypersensitivity [Unknown]
  - Sleep disorder [Unknown]
  - Urticaria [Unknown]
  - Depression [Not Recovered/Not Resolved]
  - Joint stiffness [Not Recovered/Not Resolved]
  - Insomnia [Unknown]
  - Therapeutic response shortened [Unknown]
  - Muscle spasms [Not Recovered/Not Resolved]
  - Pain in extremity [Unknown]
  - Headache [Unknown]
  - Loss of consciousness [Unknown]
  - Joint swelling [Not Recovered/Not Resolved]
  - Gait disturbance [Recovering/Resolving]
  - Muscle fatigue [Unknown]
  - Chills [Unknown]
  - Mobility decreased [Unknown]
  - Weight decreased [Unknown]
  - Device issue [Unknown]
  - Anxiety [Recovered/Resolved]
  - Dry eye [Recovering/Resolving]
  - Papule [Unknown]
  - Impaired self-care [Recovering/Resolving]
  - Sinus disorder [Unknown]
  - Muscle spasms [Unknown]
  - Bone pain [Not Recovered/Not Resolved]
  - Rash papular [Unknown]
  - Paraesthesia [Recovering/Resolving]
  - COVID-19 [Unknown]

NARRATIVE: CASE EVENT DATE: 2020
